FAERS Safety Report 7447393-9 (Version None)
Quarter: 2011Q2

REPORT INFORMATION
  Report Type: 
  Country: None (occurrence: None)
  Receive Date: 20110429
  Receipt Date: 20110225
  Transmission Date: 20111010
  Serious: No
  Sender: FDA-Public Use
  Company Number: US-ASTRAZENECA-2011SE10781

PATIENT
  Sex: Female

DRUGS (3)
  1. PLAVIX [Suspect]
     Route: 065
  2. NEXIUM [Suspect]
     Dosage: ONCE DAILY
     Route: 048
  3. ASPIRIN [Suspect]
     Route: 065

REACTIONS (3)
  - BLOOD DISORDER [None]
  - DRUG DOSE OMISSION [None]
  - BURN OESOPHAGEAL [None]
